FAERS Safety Report 8009096-1 (Version None)
Quarter: 2011Q4

REPORT INFORMATION
  Report Type: 
  Country: None (occurrence: None)
  Receive Date: 20111227
  Receipt Date: 20111220
  Transmission Date: 20120403
  Serious: No
  Sender: FDA-Public Use
  Company Number: US-PFIZER INC-2011309790

PATIENT
  Sex: Female

DRUGS (1)
  1. FLECTOR [Suspect]
     Indication: ARTHRALGIA
     Dosage: UNK
     Dates: start: 20111201

REACTIONS (1)
  - DRUG INEFFECTIVE [None]
